FAERS Safety Report 15742134 (Version 1)
Quarter: 2018Q4

REPORT INFORMATION
  Report Type: Spontaneous
  Country: US (occurrence: US)
  Receive Date: 20181219
  Receipt Date: 20181219
  Transmission Date: 20190205
  Serious: Yes (Hospitalization)
  Sender: FDA-Public Use
  Company Number: US-LPDUSPRD-20182359

PATIENT
  Age: 69 Year
  Sex: Female

DRUGS (1)
  1. ACETYLCYSTEINE SOLUTION, USP (7504-25) [Suspect]
     Active Substance: ACETYLCYSTEINE
     Dosage: UNKNOWN DOSE ONCE
     Route: 065
     Dates: start: 2018

REACTIONS (2)
  - Respiratory distress [Recovered/Resolved]
  - Chest pain [Recovered/Resolved]

NARRATIVE: CASE EVENT DATE: 2018
